APPROVED DRUG PRODUCT: DEFERASIROX
Active Ingredient: DEFERASIROX
Strength: 360MG
Dosage Form/Route: TABLET;ORAL
Application: A214474 | Product #003 | TE Code: AB
Applicant: AUROBINDO PHARMA LTD
Approved: Oct 16, 2023 | RLD: No | RS: No | Type: RX